FAERS Safety Report 9726135 (Version 1)
Quarter: 2013Q4

REPORT INFORMATION
  Report Type: Spontaneous
  Country: ZA (occurrence: ZA)
  Receive Date: 20131203
  Receipt Date: 20131203
  Transmission Date: 20140711
  Serious: Yes (Other)
  Sender: FDA-Public Use
  Company Number: ZA-JNJFOC-20131118021

PATIENT
  Age: 0 None
  Sex: Female
  Weight: 2.3 kg

DRUGS (5)
  1. REVELLEX [Suspect]
     Indication: CROHN^S DISEASE
     Route: 064
  2. AZAPRESS [Suspect]
     Indication: PRODUCT USED FOR UNKNOWN INDICATION
     Route: 065
  3. FYBOGEL [Suspect]
     Indication: PRODUCT USED FOR UNKNOWN INDICATION
     Route: 065
  4. FOLIC ACID [Concomitant]
     Route: 065
  5. CALTRATE [Concomitant]
     Route: 065

REACTIONS (3)
  - Premature baby [Not Recovered/Not Resolved]
  - Foetal exposure during pregnancy [Recovered/Resolved]
  - Exposure during breast feeding [Unknown]
